FAERS Safety Report 11364227 (Version 1)
Quarter: 2015Q3

REPORT INFORMATION
  Report Type: Spontaneous
  Country: US (occurrence: None)
  Receive Date: 20150810
  Receipt Date: 20150810
  Transmission Date: 20151125
  Serious: No
  Sender: FDA-Public Use
  Company Number: None

PATIENT
  Age: 59 Year
  Sex: Male

DRUGS (15)
  1. AUGMENTIN [Concomitant]
     Active Substance: AMOXICILLIN\CLAVULANATE POTASSIUM
  2. IRON [Concomitant]
     Active Substance: IRON
  3. LORAZEPAM. [Concomitant]
     Active Substance: LORAZEPAM
  4. MULTIVITAMIN [Concomitant]
     Active Substance: VITAMINS
  5. PROCHLORPER [Concomitant]
  6. AMPHETAMINE [Concomitant]
     Active Substance: AMPHETAMINE
  7. COUMADIN [Concomitant]
     Active Substance: WARFARIN SODIUM
  8. LEVOTHYROXIN [Concomitant]
     Active Substance: LEVOTHYROXINE
  9. FONDAPARINUX [Concomitant]
     Active Substance: FONDAPARINUX
  10. AFINITOR [Suspect]
     Active Substance: EVEROLIMUS
     Indication: RENAL CANCER
     Route: 048
     Dates: start: 20140123, end: 20150807
  11. PROZAC [Concomitant]
     Active Substance: FLUOXETINE HYDROCHLORIDE
  12. RANITIDINE [Concomitant]
     Active Substance: RANITIDINE\RANITIDINE HYDROCHLORIDE
  13. SUTENT [Concomitant]
     Active Substance: SUNITINIB MALATE
  14. ZOFRAN [Concomitant]
     Active Substance: ONDANSETRON HYDROCHLORIDE
  15. SPIRONOLACT [Concomitant]

REACTIONS (3)
  - Drug ineffective [None]
  - Bronchitis [None]
  - Red blood cell count decreased [None]

NARRATIVE: CASE EVENT DATE: 20150807
